FAERS Safety Report 6976892-9 (Version None)
Quarter: 2010Q3

REPORT INFORMATION
  Report Type: 
  Country: None (occurrence: None)
  Receive Date: 20100910
  Receipt Date: 20100910
  Transmission Date: 20110219
  Serious: Yes (Other)
  Sender: FDA-Public Use
  Company Number: D0068747A

PATIENT
  Sex: Male

DRUGS (3)
  1. AVODART [Suspect]
     Dosage: .5MG UNKNOWN
     Route: 048
     Dates: start: 20030101
  2. LEVOTHYROXINE SODIUM [Concomitant]
     Dosage: 100UG PER DAY
     Route: 048
  3. OMNIC [Concomitant]
     Dosage: .4MG AS REQUIRED
     Route: 048

REACTIONS (2)
  - FEMORAL NECK FRACTURE [None]
  - PARKINSON'S DISEASE [None]
